FAERS Safety Report 7833727-X (Version None)
Quarter: 2011Q4

REPORT INFORMATION
  Report Type: 
  Country: None (occurrence: None)
  Receive Date: 20111024
  Receipt Date: 20111020
  Transmission Date: 20120403
  Serious: Yes (Death)
  Sender: FDA-Public Use
  Company Number: US-B.I. PHARMACEUTICALS,INC./RIDGEFIELD-2011-BP-24629BP

PATIENT
  Age: 90 Year
  Sex: Male

DRUGS (9)
  1. XALATAN [Concomitant]
     Indication: GLAUCOMA
     Dates: end: 20110919
  2. LYRICA [Concomitant]
     Indication: NEUROPATHY PERIPHERAL
     Dates: end: 20110919
  3. LEVOTHYROXINE SODIUM [Concomitant]
     Indication: HYPOTHYROIDISM
     Dates: end: 20110919
  4. FUROSEMIDE [Concomitant]
     Indication: CARDIAC FAILURE
     Dates: end: 20110919
  5. OXYCODONE HCL [Concomitant]
     Indication: NEUROPATHY PERIPHERAL
     Dates: end: 20110919
  6. ADVAIR DISKUS 100/50 [Concomitant]
     Indication: EMPHYSEMA
     Route: 055
     Dates: end: 20110919
  7. MICARDIS [Suspect]
     Dates: end: 20110919
  8. PLAVIX [Concomitant]
     Dates: end: 20110919
  9. DIGOXIN [Concomitant]
     Indication: CARDIAC FAILURE
     Dates: end: 20110919

REACTIONS (2)
  - RESPIRATORY DISTRESS [None]
  - EMPHYSEMA [None]
